FAERS Safety Report 7500704-8 (Version None)
Quarter: 2011Q2

REPORT INFORMATION
  Report Type: 
  Country: None (occurrence: None)
  Receive Date: 20110517
  Receipt Date: 20110503
  Transmission Date: 20111010
  Serious: Yes (Hospitalization, Other)
  Sender: FDA-Public Use
  Company Number: DSM-2011-00336

PATIENT
  Sex: Female

DRUGS (2)
  1. AXELER (OLMESARTAN MEDOXOMIL, AMLODIPINE BESILATE) (TABLET) (OLMESARTA [Suspect]
     Indication: PRODUCT USED FOR UNKNOWN INDICATION
     Dosage: ORAL
     Route: 048
     Dates: start: 20100601
  2. RIFINAH (ISONIAZID, RIFAMPICIN)(ISONIAZID, RIFAMPICIN) [Concomitant]

REACTIONS (8)
  - FOETAL HEART RATE DISORDER [None]
  - OLIGOHYDRAMNIOS [None]
  - NEONATAL ANURIA [None]
  - MATERNAL DRUGS AFFECTING FOETUS [None]
  - CAESAREAN SECTION [None]
  - RENAL FAILURE NEONATAL [None]
  - NEONATAL HYPOTENSION [None]
  - FOETAL GROWTH RESTRICTION [None]
